FAERS Safety Report 19702499 (Version 3)
Quarter: 2022Q2

REPORT INFORMATION
  Report Type: Spontaneous
  Country: US (occurrence: US)
  Receive Date: 20210815
  Receipt Date: 20220505
  Transmission Date: 20220720
  Serious: Yes (Other)
  Sender: FDA-Public Use
  Company Number: US-UCBSA-2021037382

PATIENT
  Age: 29 Year
  Sex: Female

DRUGS (1)
  1. CIMZIA [Suspect]
     Active Substance: CERTOLIZUMAB PEGOL
     Indication: Psoriasis
     Dosage: 400 MILLIGRAM, EV 4 WEEKS
     Route: 058
     Dates: start: 201910

REACTIONS (4)
  - Bronchitis [Unknown]
  - Psoriasis [Unknown]
  - Illness [Unknown]
  - Product storage error [Unknown]

NARRATIVE: CASE EVENT DATE: 20210701
